FAERS Safety Report 7406073-6 (Version None)
Quarter: 2011Q2

REPORT INFORMATION
  Report Type: 
  Country: None (occurrence: None)
  Receive Date: 20110411
  Receipt Date: 20110405
  Transmission Date: 20111010
  Serious: Yes (Other)
  Sender: FDA-Public Use
  Company Number: B0711829A

PATIENT
  Age: 29 Year
  Sex: Male

DRUGS (1)
  1. BACTROBAN [Suspect]
     Indication: EPISTAXIS
     Route: 061
     Dates: start: 20110401, end: 20110404

REACTIONS (4)
  - INSOMNIA [None]
  - MEDICATION ERROR [None]
  - INCORRECT ROUTE OF DRUG ADMINISTRATION [None]
  - PSYCHOTIC DISORDER [None]
